FAERS Safety Report 13462946 (Version 1)
Quarter: 2017Q2

REPORT INFORMATION
  Report Type: Spontaneous
  Country: CH (occurrence: CH)
  Receive Date: 20170420
  Receipt Date: 20170420
  Transmission Date: 20170830
  Serious: Yes (Death, Hospitalization, Other)
  Sender: FDA-Public Use
  Company Number: CH-PFIZER INC-2017169775

PATIENT
  Age: 84 Year
  Sex: Female

DRUGS (17)
  1. CORDARONE [Suspect]
     Active Substance: AMIODARONE HYDROCHLORIDE
     Dosage: UNK, 3X/DAY (2-1-2) (LOADING DOSE)
     Route: 048
     Dates: start: 20170317, end: 20170320
  2. SPASMO-URGENIN [Concomitant]
     Active Substance: HERBALS\TROSPIUM
     Dosage: UNK
     Dates: start: 2016, end: 20170319
  3. TOREM [Concomitant]
     Active Substance: TORSEMIDE
     Dosage: UNK
     Dates: start: 2016, end: 20170318
  4. BELOC ZOK [Concomitant]
     Active Substance: METOPROLOL SUCCINATE
     Dosage: UNK
     Dates: start: 2016, end: 20170319
  5. PASPERTIN [Concomitant]
     Active Substance: METOCLOPRAMIDE HYDROCHLORIDE
     Dosage: UNK
     Dates: start: 20170318, end: 20170320
  6. ZESTRIL [Concomitant]
     Active Substance: LISINOPRIL
     Dosage: UNK
     Dates: start: 2016, end: 20170318
  7. TRANSIPEG [Concomitant]
     Active Substance: POLYETHYLENE GLYCOL 3350
     Dosage: UNK
     Dates: start: 2016, end: 20170320
  8. XARELTO [Interacting]
     Active Substance: RIVAROXABAN
     Indication: ATRIAL FIBRILLATION
     Dosage: 20 MG, DAILY
     Route: 048
     Dates: start: 2015, end: 20170318
  9. VITAMIN D3 [Concomitant]
     Active Substance: CHOLECALCIFEROL
     Dosage: UNK
     Dates: start: 2016, end: 20170320
  10. XARELTO [Interacting]
     Active Substance: RIVAROXABAN
     Dosage: 0.5 DF, DAILY
     Route: 048
     Dates: start: 20170319, end: 20170319
  11. KALIUM HAUSMANN KCL [Concomitant]
     Dosage: KALIUM HAUSMANN KCL RETARD DRAGEES
     Dates: start: 20170317, end: 20170317
  12. KALIUM HAUSMANN KCL [Concomitant]
     Dosage: KALIUM HAUSMANN EFFERVETTEN BRAUSETABLETTEN
     Dates: start: 20170318, end: 20170319
  13. ATORVASTATIN [Concomitant]
     Active Substance: ATORVASTATIN
     Dosage: UNK
     Dates: start: 2016, end: 20170319
  14. ESOMEP [Concomitant]
     Active Substance: ESOMEPRAZOLE
     Dosage: UNK
     Dates: start: 20170318, end: 20170320
  15. KALCIPOS [Concomitant]
     Active Substance: CALCIUM CARBONATE
     Dosage: UNK
     Dates: start: 2016, end: 20170319
  16. SERESTA [Concomitant]
     Active Substance: OXAZEPAM
     Dosage: UNK
     Dates: start: 2016, end: 20170319
  17. BACTRIM [Concomitant]
     Active Substance: SULFAMETHOXAZOLE\TRIMETHOPRIM
     Dosage: UNK
     Dates: start: 20170318, end: 20170319

REACTIONS (4)
  - Anticoagulation drug level increased [Not Recovered/Not Resolved]
  - Drug interaction [Not Recovered/Not Resolved]
  - Acute hepatic failure [Unknown]
  - Renal failure [Unknown]

NARRATIVE: CASE EVENT DATE: 20170317
